FAERS Safety Report 9013184 (Version 2)
Quarter: 2014Q2

REPORT INFORMATION
  Report Type: Spontaneous
  Country: US (occurrence: US)
  Receive Date: 20130115
  Receipt Date: 20140624
  Transmission Date: 20141212
  Serious: No
  Sender: FDA-Public Use
  Company Number: US-BIOGENIDEC-2013BI003075

PATIENT
  Sex: Female

DRUGS (2)
  1. TYSABRI [Suspect]
     Indication: MULTIPLE SCLEROSIS
     Route: 042
     Dates: start: 20080530, end: 20121214
  2. TYSABRI [Suspect]
     Indication: MULTIPLE SCLEROSIS
     Route: 042
     Dates: start: 20140117

REACTIONS (5)
  - Stress [Recovered/Resolved with Sequelae]
  - Anxiety [Unknown]
  - General symptom [Recovered/Resolved with Sequelae]
  - White blood cell count increased [Recovered/Resolved with Sequelae]
  - Frustration [Recovered/Resolved with Sequelae]
